FAERS Safety Report 4721883-1 (Version None)
Quarter: 2005Q3

REPORT INFORMATION
  Report Type: 
  Country: None (occurrence: None)
  Receive Date: 20050721
  Receipt Date: 20050524
  Transmission Date: 20060218
  Serious: Yes (Hospitalization)
  Sender: FDA-Public Use
  Company Number: US-BRISTOL-MYERS SQUIBB COMPANY-12980546

PATIENT
  Age: 56 Year
  Sex: Male
  Weight: 86 kg

DRUGS (11)
  1. COUMADIN [Suspect]
     Indication: MITRAL VALVE REPLACEMENT
     Dates: start: 20050420
  2. ACIDOPHILUS [Concomitant]
  3. ALDACTONE [Concomitant]
  4. ASPIRIN [Concomitant]
  5. FOLIC ACID [Concomitant]
     Dates: end: 20050523
  6. IRON [Concomitant]
  7. LASIX [Concomitant]
  8. NAFCILLIN SODIUM [Concomitant]
     Dates: end: 20050323
  9. PLAVIX [Concomitant]
  10. TOPROL-XL [Concomitant]
  11. TYLENOL W/ CODEINE NO. 3 [Concomitant]
     Dates: start: 20050420

REACTIONS (1)
  - INTERNATIONAL NORMALISED RATIO FLUCTUATION [None]
